FAERS Safety Report 16991557 (Version 1)
Quarter: 2019Q4

REPORT INFORMATION
  Report Type: Spontaneous
  Country: US (occurrence: US)
  Receive Date: 20191104
  Receipt Date: 20191104
  Transmission Date: 20200122
  Serious: Yes (Other)
  Sender: FDA-Public Use
  Company Number: US-BAUSCH-BL-2019-058829

PATIENT
  Age: 78 Year
  Sex: Male

DRUGS (3)
  1. NICOTINAMIDE [Suspect]
     Active Substance: NIACINAMIDE
     Indication: PEMPHIGOID
     Route: 048
  2. TRIAMCINOLONE [Suspect]
     Active Substance: TRIAMCINOLONE
     Indication: PEMPHIGOID
     Dosage: AS NECESSARY
     Route: 065
  3. DOXYCYCLINE. [Suspect]
     Active Substance: DOXYCYCLINE
     Indication: PEMPHIGOID
     Route: 048

REACTIONS (3)
  - Therapy non-responder [Unknown]
  - Condition aggravated [Recovered/Resolved]
  - Pemphigoid [Recovered/Resolved]
